FAERS Safety Report 13467480 (Version 3)
Quarter: 2017Q3

REPORT INFORMATION
  Report Type: Report from Study
  Country: US (occurrence: US)
  Receive Date: 20170421
  Receipt Date: 20170912
  Transmission Date: 20171127
  Serious: Yes (Other)
  Sender: FDA-Public Use
  Company Number: US-UCBSA-2017015124

PATIENT
  Age: 75 Year
  Sex: Female
  Weight: 200 kg

DRUGS (3)
  1. METFORMIN [Concomitant]
     Active Substance: METFORMIN HYDROCHLORIDE
     Indication: DIABETES MELLITUS
     Dosage: ONCE DAILY (QD), ABOUT 3 YEARS AGO?
     Route: 048
     Dates: end: 201704
  2. METHOTREXATE. [Concomitant]
     Active Substance: METHOTREXATE
     Indication: RHEUMATOID ARTHRITIS
     Dosage: 8 DF, WEEKLY (QW)
     Route: 048
     Dates: start: 2010, end: 201704
  3. CERTOLIZUMAB PEGOL [Suspect]
     Active Substance: CERTOLIZUMAB PEGOL
     Indication: RHEUMATOID ARTHRITIS
     Dosage: 200 MG, EV 2 WEEKS(QOW)
     Route: 058
     Dates: start: 201510, end: 20170405

REACTIONS (1)
  - Gastrointestinal bacterial infection [Recovered/Resolved]

NARRATIVE: CASE EVENT DATE: 201702
